FAERS Safety Report 13878510 (Version 1)
Quarter: 2017Q3

REPORT INFORMATION
  Report Type: Spontaneous
  Country: US (occurrence: US)
  Receive Date: 20170817
  Receipt Date: 20170817
  Transmission Date: 20171127
  Serious: No
  Sender: FDA-Public Use
  Company Number: US-ROCHE-1854524

PATIENT
  Age: 58 Year
  Sex: Male

DRUGS (17)
  1. WARFARIN SODIUM. [Interacting]
     Active Substance: WARFARIN SODIUM
     Dosage: TOTAL WEEKLY DOSE: 70 MG/WEEK
     Route: 048
  2. WARFARIN SODIUM. [Interacting]
     Active Substance: WARFARIN SODIUM
     Dosage: TOTAL WEEKLY DOSE: 75 MG/WEEK
     Route: 048
  3. WARFARIN SODIUM. [Interacting]
     Active Substance: WARFARIN SODIUM
     Dosage: 5 MG ORALLY 5 DAYS A WEEK AND 7.5 MG 2 DAYS A WEEK FOR A TOTAL WEEKLY DOSE 40 MG
     Route: 048
  4. ACETAMINOPHEN. [Concomitant]
     Active Substance: ACETAMINOPHEN
     Indication: PAIN
     Route: 048
  5. WARFARIN SODIUM. [Interacting]
     Active Substance: WARFARIN SODIUM
     Dosage: TOTAL WEEKLY DOSE: 55 MG/WEEK
     Route: 048
  6. WARFARIN SODIUM. [Interacting]
     Active Substance: WARFARIN SODIUM
     Dosage: TOTAL WEEKLY DOSE: 90 MG/WEEK
     Route: 048
  7. LISINOPRIL. [Concomitant]
     Active Substance: LISINOPRIL
     Route: 048
  8. WARFARIN SODIUM. [Interacting]
     Active Substance: WARFARIN SODIUM
     Dosage: 5 MG ORALLY 4 DAYS A WEEK AND 7.5 MG 3 DAYS A WEEK FOR A TOTAL WEEKLY DOSE 42.5 MG
     Route: 048
  9. RIBAVIRIN. [Suspect]
     Active Substance: RIBAVIRIN
     Indication: HEPATITIS C
     Route: 048
  10. WARFARIN SODIUM. [Interacting]
     Active Substance: WARFARIN SODIUM
     Dosage: TOTAL WEEKLY DOSE: 47.5 MG/WEEK
     Route: 048
  11. VIEKIRA PAK [Interacting]
     Active Substance: DASABUVIR\OMBITASVIR\PARITAPREVIR\RITONAVIR
     Indication: HEPATITIS C
     Route: 065
  12. NITROGLYCERIN. [Concomitant]
     Active Substance: NITROGLYCERIN
     Indication: CHEST PAIN
     Route: 060
  13. RIBAVIRIN. [Interacting]
     Active Substance: RIBAVIRIN
     Dosage: DECREASED RIBAVIRIN DOSE (600 MG ORALLY EVERY MORNING AND 400 MG EVERY EVENING)
     Route: 048
  14. WARFARIN SODIUM. [Interacting]
     Active Substance: WARFARIN SODIUM
     Indication: HEPATITIS C
     Dosage: 5 MG ORALLY 5 DAYS A WEEK AND 7.5 MG 2 DAYS A WEEK FOR A TOTAL WEEKLY DOSE 40 MG
     Route: 048
  15. WARFARIN SODIUM. [Interacting]
     Active Substance: WARFARIN SODIUM
     Dosage: TOTAL WEEKLY DOSE: 80 MG/WEEK
     Route: 048
  16. PANTOPRAZOLE [Concomitant]
     Active Substance: PANTOPRAZOLE
     Route: 048
  17. DILTIAZEM CD [Concomitant]
     Active Substance: DILTIAZEM
     Route: 048

REACTIONS (3)
  - Drug interaction [Unknown]
  - International normalised ratio increased [Recovered/Resolved]
  - Haemoglobin decreased [Recovered/Resolved]
